FAERS Safety Report 5852081-6 (Version None)
Quarter: 2008Q3

REPORT INFORMATION
  Report Type: 
  Country: None (occurrence: None)
  Receive Date: 20080819
  Receipt Date: 20080819
  Transmission Date: 20090109
  Serious: Yes (Hospitalization)
  Sender: FDA-Public Use
  Company Number: None

PATIENT
  Age: 48 Year
  Sex: Male
  Weight: 77 kg

DRUGS (10)
  1. LITHIUM CARBONATE [Suspect]
     Indication: SCHIZOPHRENIA
     Dosage: 300MG TID PO (DURATION: CHRONIC)
     Route: 048
  2. LISINOPRIL [Suspect]
  3. PROTONIX [Concomitant]
  4. TRICOR [Concomitant]
  5. ZYPREXA [Concomitant]
  6. SEROQUEL [Concomitant]
  7. DEPAKOTE [Concomitant]
  8. LITHIUM CARBONATE [Concomitant]
  9. ATIVAN [Concomitant]
  10. BENZTROPINE MESYLATE [Concomitant]

REACTIONS (3)
  - ANTIPSYCHOTIC DRUG LEVEL INCREASED [None]
  - MENTAL STATUS CHANGES [None]
  - SOMNOLENCE [None]
